FAERS Safety Report 5956469-4 (Version None)
Quarter: 2008Q4

REPORT INFORMATION
  Report Type: 
  Country: None (occurrence: None)
  Receive Date: 20081118
  Receipt Date: 20081112
  Transmission Date: 20090506
  Serious: Yes (Hospitalization)
  Sender: FDA-Public Use
  Company Number: FR-BRISTOL-MYERS SQUIBB COMPANY-14364749

PATIENT
  Age: 24 Year
  Sex: Female
  Weight: 101 kg

DRUGS (3)
  1. ABILIFY [Suspect]
     Indication: BIPOLAR DISORDER
     Dosage: INCREASED TO 15MG
     Route: 048
     Dates: start: 20080923, end: 20081011
  2. TERALITHE [Concomitant]
     Indication: BIPOLAR DISORDER
     Route: 048
     Dates: start: 20071201
  3. BROMAZEPAM [Concomitant]
     Route: 048
     Dates: start: 20080101, end: 20081003

REACTIONS (2)
  - DYSTHYMIC DISORDER [None]
  - MANIA [None]
